FAERS Safety Report 4314251-8 (Version None)
Quarter: 2004Q1

REPORT INFORMATION
  Report Type: 
  Country: None (occurrence: None)
  Receive Date: 20040309
  Receipt Date: 20040309
  Transmission Date: 20041129
  Serious: Yes (Death)
  Sender: FDA-Public Use
  Company Number: None

PATIENT
  Age: 76 Year
  Sex: Female
  Weight: 81.6475 kg

DRUGS (1)
  1. CORDIS CYPHER STENT DRUG ELUTING [Suspect]
     Dates: start: 20040301

REACTIONS (4)
  - CARDIAC TAMPONADE [None]
  - CORONARY ARTERY DISSECTION [None]
  - IATROGENIC INJURY [None]
  - MEDICAL DEVICE COMPLICATION [None]
